FAERS Safety Report 24993647 (Version 1)
Quarter: 2025Q1

REPORT INFORMATION
  Report Type: Spontaneous
  Country: IT (occurrence: IT)
  Receive Date: 20250221
  Receipt Date: 20250221
  Transmission Date: 20250408
  Serious: Yes (Other)
  Sender: MERCK SHARP & DOHME LLC
  Company Number: None

PATIENT
  Age: 1 Year
  Sex: Male
  Weight: 12 kg

DRUGS (2)
  1. MEASLES-MUMPS-RUBELLA-VARICELLA VIRUS VACCINE, LIVE [Suspect]
     Active Substance: MEASLES-MUMPS-RUBELLA-VARICELLA VIRUS VACCINE, LIVE
  2. STERILE DILUENT (WATER) [Suspect]
     Active Substance: WATER

REACTIONS (6)
  - Thrombocytopenia [Recovered/Resolved]
  - Pharyngitis [Recovered/Resolved]
  - Peripheral swelling [Recovered/Resolved]
  - Hyperaemia [Recovered/Resolved]
  - Stomatitis [Recovered/Resolved]
  - Pyrexia [Recovered/Resolved]

NARRATIVE: CASE EVENT DATE: 20241204
